FAERS Safety Report 13926684 (Version 1)
Quarter: 2017Q3

REPORT INFORMATION
  Report Type: Spontaneous
  Country: US (occurrence: US)
  Receive Date: 20170831
  Receipt Date: 20170831
  Transmission Date: 20171127
  Serious: Yes (Other)
  Sender: FDA-Public Use
  Company Number: US-SUNOVION-2017SUN001312

PATIENT
  Age: 69 Year
  Sex: Male

DRUGS (1)
  1. BROVANA [Suspect]
     Active Substance: ARFORMOTEROL TARTRATE
     Indication: PRODUCT USED FOR UNKNOWN INDICATION
     Dosage: 15 ?G, SINGLE
     Route: 048
     Dates: start: 20170320, end: 20170320

REACTIONS (1)
  - Atrial fibrillation [Recovered/Resolved]

NARRATIVE: CASE EVENT DATE: 20170320
